FAERS Safety Report 25372062 (Version 1)
Quarter: 2025Q2

REPORT INFORMATION
  Report Type: Spontaneous
  Country: KR (occurrence: KR)
  Receive Date: 20250529
  Receipt Date: 20250529
  Transmission Date: 20250716
  Serious: Yes (Other)
  Sender: ORGANON
  Company Number: KR-ORGANON-O2505KOR000263

PATIENT
  Sex: Female

DRUGS (3)
  1. ETONOGESTREL [Suspect]
     Active Substance: ETONOGESTREL
     Route: 059
     Dates: start: 2018, end: 202203
  2. ETONOGESTREL [Suspect]
     Active Substance: ETONOGESTREL
     Route: 058
     Dates: start: 20220304
  3. ETONOGESTREL [Suspect]
     Active Substance: ETONOGESTREL
     Route: 059
     Dates: start: 20250317

REACTIONS (15)
  - Insomnia [Not Recovered/Not Resolved]
  - Depression [Not Recovered/Not Resolved]
  - Anxiety [Not Recovered/Not Resolved]
  - Device dislocation [Not Recovered/Not Resolved]
  - Complication of device removal [Not Recovered/Not Resolved]
  - Complication associated with device [Recovered/Resolved]
  - Abdominal discomfort [Unknown]
  - Hypomenorrhoea [Not Recovered/Not Resolved]
  - Breast calcifications [Not Recovered/Not Resolved]
  - Soft tissue foreign body [Not Recovered/Not Resolved]
  - Overdose [Unknown]
  - Device issue [Not Recovered/Not Resolved]
  - Device placement issue [Not Recovered/Not Resolved]
  - Incorrect product administration duration [Unknown]
  - Incorrect product administration duration [Unknown]

NARRATIVE: CASE EVENT DATE: 20210101
